FAERS Safety Report 8562111 (Version 13)
Quarter: 2013Q3

REPORT INFORMATION
  Report Type: Spontaneous
  Country: US (occurrence: US)
  Receive Date: 20120515
  Receipt Date: 20130716
  Transmission Date: 20140515
  Serious: Yes (Other)
  Sender: FDA-Public Use
  Company Number: PHEH2012US009995

PATIENT
  Sex: Female

DRUGS (6)
  1. ZOMETA [Suspect]
     Indication: BREAST CANCER
     Dosage: 4 MG, QMO
     Route: 042
     Dates: start: 200606
  2. PERIDEX [Concomitant]
  3. PROCHLORPERAZINE [Concomitant]
  4. XELODA [Concomitant]
  5. HYDROCODONE [Concomitant]
  6. AUGMENTIN [Concomitant]

REACTIONS (76)
  - Osteonecrosis of jaw [Unknown]
  - Pain in jaw [Unknown]
  - Exposed bone in jaw [Unknown]
  - Tooth loss [Unknown]
  - Oral cavity fistula [Unknown]
  - Fistula discharge [Unknown]
  - Hypoaesthesia oral [Unknown]
  - Pseudoepitheliomatous hyperplasia [Unknown]
  - Oral disorder [Unknown]
  - Excessive granulation tissue [Unknown]
  - Bone erosion [Unknown]
  - Erythema [Unknown]
  - Induration [Unknown]
  - Mouth ulceration [Unknown]
  - Swelling [Unknown]
  - Abscess jaw [Unknown]
  - Asthenia [Unknown]
  - Deformity [Unknown]
  - Injury [Unknown]
  - Emotional distress [Unknown]
  - Anhedonia [Unknown]
  - Osteosclerosis [Unknown]
  - Bone lesion [Unknown]
  - Nodule [Unknown]
  - Uterine leiomyoma [Unknown]
  - Metastases to bone [Unknown]
  - Laryngeal oedema [Unknown]
  - Metastases to spine [Unknown]
  - Cellulitis [Unknown]
  - Oedema [Unknown]
  - Lung neoplasm malignant [Unknown]
  - Second primary malignancy [Unknown]
  - Spinal osteoarthritis [Unknown]
  - Intervertebral disc degeneration [Unknown]
  - Bone disorder [Unknown]
  - Claustrophobia [Unknown]
  - Metastases to liver [Unknown]
  - Metastases to kidney [Unknown]
  - Amnesia [Unknown]
  - Benign salivary gland neoplasm [Unknown]
  - Benign lymph node neoplasm [Unknown]
  - Cystitis [Unknown]
  - Soft tissue disorder [Unknown]
  - Urinary tract infection [Unknown]
  - Upper respiratory tract infection [Unknown]
  - Libido decreased [Unknown]
  - Vulvovaginal mycotic infection [Unknown]
  - Mitral valve incompetence [Unknown]
  - Osteomyelitis [Unknown]
  - Pyogenic granuloma [Unknown]
  - Atelectasis [Unknown]
  - Pathological fracture [Unknown]
  - Lobar pneumonia [Unknown]
  - Foot fracture [Unknown]
  - Dyspnoea [Unknown]
  - Exostosis [Unknown]
  - Bone cancer [Unknown]
  - Metaplasia [Unknown]
  - Scar [Unknown]
  - Bone marrow oedema [Unknown]
  - Febrile neutropenia [Unknown]
  - Neutropenia [Unknown]
  - Fall [Unknown]
  - Ventricular hypokinesia [Unknown]
  - Tricuspid valve incompetence [Unknown]
  - Renal cyst [Unknown]
  - Uterine enlargement [Unknown]
  - Palmar-plantar erythrodysaesthesia syndrome [Unknown]
  - Arteriosclerosis [Unknown]
  - Dysphagia [Unknown]
  - Breast cancer [Unknown]
  - Malignant neoplasm progression [Unknown]
  - Renal failure chronic [Unknown]
  - Bronchitis [Unknown]
  - Swelling face [Unknown]
  - Lip swelling [Unknown]
